FAERS Safety Report 16000883 (Version 3)
Quarter: 2019Q1

REPORT INFORMATION
  Report Type: Spontaneous
  Country: ES (occurrence: ES)
  Receive Date: 20190225
  Receipt Date: 20190305
  Transmission Date: 20190418
  Serious: Yes (Hospitalization, Other)
  Sender: FDA-Public Use
  Company Number: ES-PFIZER INC-2019078293

PATIENT
  Age: 32 Year
  Sex: Male

DRUGS (9)
  1. COCAINE [Concomitant]
     Active Substance: COCAINE
     Dosage: UNK (OCCASIONAL INTRANASAL USE OF COCAINE USUALLY ON WEEKENDS)
     Route: 045
  2. LSD [Concomitant]
     Active Substance: LYSERGIDE
     Dosage: UNK
  3. PREGABALIN. [Suspect]
     Active Substance: PREGABALIN
     Indication: INSOMNIA
     Dosage: 150 MG, 1X/DAY (NOCTURNAL DOSE)
     Route: 048
  4. PREGABALIN. [Suspect]
     Active Substance: PREGABALIN
     Dosage: UNK
     Route: 054
  5. AMPHETAMINE [Concomitant]
     Active Substance: AMPHETAMINE
     Dosage: UNK
  6. CANNABIS [Concomitant]
     Active Substance: CANNABIS SATIVA SUBSP. INDICA TOP
     Indication: HYPNOTHERAPY
     Dosage: UNK, DAILY (CURRENTLY BETWEEN 2-4 JOINTS A DAY)
  7. PREGABALIN. [Suspect]
     Active Substance: PREGABALIN
     Dosage: 20 DF, UNK (20 CAPSULES OF 150 MG (EQUIVALENT TO APPROXIMATELY 3 G)
     Route: 048
  8. ALPRAZOLAM. [Concomitant]
     Active Substance: ALPRAZOLAM
     Dosage: 8 MG, DAILY (UP TO 8 MG/DAY)
  9. ECSTASY [Concomitant]
     Active Substance: MIDOMAFETAMINE
     Dosage: UNK

REACTIONS (2)
  - Product use issue [Unknown]
  - Drug abuse [Recovered/Resolved]
